FAERS Safety Report 7728351-3 (Version None)
Quarter: 2011Q3

REPORT INFORMATION
  Report Type: 
  Country: None (occurrence: None)
  Receive Date: 20110905
  Receipt Date: 20110901
  Transmission Date: 20111222
  Serious: Yes (Death, Hospitalization)
  Sender: FDA-Public Use
  Company Number: PHHY2011BR65106

PATIENT
  Sex: Female

DRUGS (3)
  1. ASPIRIN [Concomitant]
     Indication: BLOOD DISORDER
     Dosage: 100 MG, UNK
     Dates: start: 20110401
  2. EXELON [Suspect]
     Indication: HALLUCINATION
     Dosage: 9MG/5CM2, 1 PATCH PER DAY
     Route: 062
     Dates: start: 20110401, end: 20110501
  3. ANTIHYPERTENSIVES [Concomitant]
     Indication: HYPERTENSION
     Dosage: UNK UKN, UNK

REACTIONS (2)
  - CEREBRAL HAEMORRHAGE [None]
  - CARDIAC ARREST [None]
